FAERS Safety Report 11072780 (Version 4)
Quarter: 2016Q1

REPORT INFORMATION
  Report Type: Report from Study
  Country: TR (occurrence: TR)
  Receive Date: 20150428
  Receipt Date: 20160210
  Transmission Date: 20160525
  Serious: Yes (Life-Threatening, Hospitalization, Other)
  Sender: FDA-Public Use
  Company Number: TR-CELGENE-TUR-2015013135

PATIENT
  Age: 64 Year
  Sex: Female
  Weight: 90 kg

DRUGS (4)
  1. KORDEXA [Suspect]
     Active Substance: DEXAMETHASONE
     Route: 065
  2. REVLIMID [Suspect]
     Active Substance: LENALIDOMIDE
     Indication: PLASMA CELL MYELOMA
     Route: 048
     Dates: start: 20140625, end: 20150112
  3. KORDEXA [Suspect]
     Active Substance: DEXAMETHASONE
     Indication: PLASMA CELL MYELOMA
     Route: 065
     Dates: start: 20140625, end: 20150112
  4. KORDEXA [Suspect]
     Active Substance: DEXAMETHASONE
     Route: 065

REACTIONS (4)
  - Lymph node tuberculosis [Recovering/Resolving]
  - Anaemia [Unknown]
  - Anaemia [Not Recovered/Not Resolved]
  - Breast cancer stage III [Not Recovered/Not Resolved]

NARRATIVE: CASE EVENT DATE: 20141214
